FAERS Safety Report 14590877 (Version 1)
Quarter: 2018Q1

REPORT INFORMATION
  Report Type: Spontaneous
  Country: CH (occurrence: CH)
  Receive Date: 20180302
  Receipt Date: 20180302
  Transmission Date: 20180509
  Serious: Yes (Life-Threatening, Hospitalization)
  Sender: FDA-Public Use
  Company Number: CH-BAYER-2018-034770

PATIENT
  Age: 74 Year
  Sex: Male

DRUGS (20)
  1. NOZINAN [Suspect]
     Active Substance: LEVOMEPROMAZINE
     Dosage: 25 MG, QD
     Route: 048
     Dates: end: 20180108
  2. SPASMO-URGENIN [Concomitant]
     Active Substance: HERBALS\TROSPIUM
     Dosage: 1 DF, BID
     Route: 048
     Dates: start: 20180104
  3. DUPHALAC [Concomitant]
     Active Substance: LACTULOSE
     Dosage: 1 DF, QD
     Dates: start: 201701, end: 20180109
  4. PANTOZOL [Suspect]
     Active Substance: PANTOPRAZOLE SODIUM
     Dosage: 40 MG, QD
     Route: 048
     Dates: start: 20180104, end: 201801
  5. REMERON [Suspect]
     Active Substance: MIRTAZAPINE
     Indication: DEPRESSION
     Dosage: 30 MG, QD
     Route: 048
     Dates: end: 20180108
  6. DEANXIT [Concomitant]
     Active Substance: FLUPENTIXOL DIHYDROCHLORIDE\MELITRACEN HYDROCHLORIDE
     Dosage: 2 DF, BID
     Route: 048
     Dates: end: 20180109
  7. LORAZEPAM. [Concomitant]
     Active Substance: LORAZEPAM
     Route: 048
  8. ASPIRIN CARDIO 100 MG [Suspect]
     Active Substance: ASPIRIN
     Dosage: 1 DF, QD
     Route: 048
     Dates: end: 20180109
  9. PRADIF T [Concomitant]
     Active Substance: TAMSULOSIN HYDROCHLORIDE
     Dosage: 1 DF, QD
     Route: 048
     Dates: end: 20180108
  10. IMAZOL [CLOTRIMAZOLE,HEXAMIDINE ISETIONATE] [Concomitant]
     Route: 061
     Dates: start: 20180108, end: 20180109
  11. ACIDUM FOLICUM [Concomitant]
     Active Substance: FOLIC ACID
     Dosage: 5 MG, QD
     Dates: start: 2017, end: 20180109
  12. BELOC [Concomitant]
     Active Substance: METOPROLOL TARTRATE
     Dosage: 25 MG, QD
     Route: 048
  13. CEFEPIME HYDROCHLORIDE. [Suspect]
     Active Substance: CEFEPIME HYDROCHLORIDE
     Indication: OSTEOMYELITIS BACTERIAL
     Dosage: 2 G, BID
     Route: 042
     Dates: start: 20171211, end: 20180108
  14. NOVALGIN (METAMIZOLE SODIUM) [Suspect]
     Active Substance: METAMIZOLE SODIUM
     Dosage: 500 MG, QID
     Dates: start: 20180108, end: 20180109
  15. PREGABALIN. [Suspect]
     Active Substance: PREGABALIN
     Dosage: 75 MG, QD
     Route: 048
     Dates: end: 20180108
  16. TEMESTA (LORAZEPAM) [Concomitant]
     Active Substance: LORAZEPAM
     Dosage: 1 MG, UNK
     Route: 048
  17. CODEIN KNOLL [Concomitant]
     Active Substance: CODEINE PHOSPHATE
     Dosage: 50 MG, TID
     Route: 048
     Dates: end: 20180109
  18. FENISTIL [Concomitant]
     Active Substance: DIMETHINDENE
     Route: 061
     Dates: start: 20180108, end: 20180109
  19. FRAGMIN [Concomitant]
     Active Substance: DALTEPARIN SODIUM
     Dosage: 5000 IU, QD
     Route: 058
     Dates: start: 201712
  20. TOREM [Concomitant]
     Active Substance: TORSEMIDE
     Dosage: 10 MG, QD
     Route: 048

REACTIONS (8)
  - Toxicity to various agents [Recovered/Resolved]
  - Disturbance in attention [Recovered/Resolved]
  - Myoclonus [Recovered/Resolved]
  - Acute kidney injury [Recovering/Resolving]
  - Aphasia [Recovered/Resolved]
  - Renal tubular necrosis [Recovering/Resolving]
  - Tonic clonic movements [Recovered/Resolved]
  - Encephalopathy [Recovered/Resolved]

NARRATIVE: CASE EVENT DATE: 20180109
